FAERS Safety Report 10167133 (Version 1)
Quarter: 2014Q2

REPORT INFORMATION
  Report Type: Spontaneous
  Country: US (occurrence: None)
  Receive Date: 20140509
  Receipt Date: 20140509
  Transmission Date: 20141212
  Serious: Yes (Hospitalization, Disabling, Other)
  Sender: FDA-Public Use
  Company Number: None

PATIENT
  Age: 65 Year
  Sex: Female
  Weight: 72.58 kg

DRUGS (1)
  1. LYRICA [Suspect]
     Indication: NEUROPATHY PERIPHERAL
     Route: 048
     Dates: start: 20070101, end: 20140502

REACTIONS (17)
  - Headache [None]
  - Peripheral swelling [None]
  - Memory impairment [None]
  - Fatigue [None]
  - Asthenia [None]
  - Paraesthesia [None]
  - Swollen tongue [None]
  - Nausea [None]
  - Diarrhoea [None]
  - Speech disorder [None]
  - Dysphemia [None]
  - Confusional state [None]
  - Amnesia [None]
  - Gait disturbance [None]
  - Vomiting [None]
  - Dysuria [None]
  - Balance disorder [None]
